FAERS Safety Report 17950114 (Version 3)
Quarter: 2021Q2

REPORT INFORMATION
  Report Type: Report from Study
  Country: US (occurrence: US)
  Receive Date: 20200626
  Receipt Date: 20210415
  Transmission Date: 20210717
  Serious: Yes (Death)
  Sender: FDA-Public Use
  Company Number: US-INSMED, INC.-US-INS-20-00308

PATIENT
  Age: 66 Year
  Sex: Male

DRUGS (1)
  1. ARIKAYCE [Suspect]
     Active Substance: AMIKACIN
     Indication: MYCOBACTERIAL INFECTION
     Dosage: 590 MILLIGRAM, QD
     Route: 055
     Dates: start: 202001

REACTIONS (7)
  - Insomnia [Unknown]
  - Drug dose omission by device [Unknown]
  - Decreased appetite [Unknown]
  - Weight decreased [Unknown]
  - Dyspnoea [Unknown]
  - Death [Fatal]
  - Device issue [Unknown]

NARRATIVE: CASE EVENT DATE: 2020
